FAERS Safety Report 5879710-5 (Version None)
Quarter: 2008Q3

REPORT INFORMATION
  Report Type: 
  Country: None (occurrence: None)
  Receive Date: 20080912
  Receipt Date: 20080904
  Transmission Date: 20090109
  Serious: Yes (Hospitalization)
  Sender: FDA-Public Use
  Company Number: MY-MERCK-0809MYS00003

PATIENT
  Age: 8 Year
  Sex: Male
  Weight: 24 kg

DRUGS (1)
  1. CANCIDAS [Suspect]
     Indication: FUNGAL SEPSIS
     Route: 041
     Dates: start: 20080801, end: 20080821

REACTIONS (2)
  - BONE MARROW FAILURE [None]
  - DELAYED ENGRAFTMENT [None]
